FAERS Safety Report 7343328-8 (Version None)
Quarter: 2011Q1

REPORT INFORMATION
  Report Type: 
  Country: None (occurrence: None)
  Receive Date: 20110310
  Receipt Date: 20110308
  Transmission Date: 20110831
  Serious: Yes (Hospitalization, Other)
  Sender: FDA-Public Use
  Company Number: US-AMGEN-USASP2011008589

PATIENT
  Age: 90 Year
  Sex: Male

DRUGS (3)
  1. NPLATE [Suspect]
     Indication: IDIOPATHIC THROMBOCYTOPENIC PURPURA
     Dosage: 90 A?G, QWK
     Route: 058
     Dates: start: 20110119
  2. ATENOLOL [Concomitant]
     Dosage: 6.5 MG, QD
  3. PREDNISONE TAB [Concomitant]
     Dosage: 60 MG, QD
     Dates: start: 20101230

REACTIONS (4)
  - MYOCARDIAL INFARCTION [None]
  - HAEMOGLOBIN DECREASED [None]
  - PLATELET COUNT DECREASED [None]
  - GENERAL PHYSICAL CONDITION ABNORMAL [None]
